FAERS Safety Report 7556397-7 (Version None)
Quarter: 2011Q2

REPORT INFORMATION
  Report Type: 
  Country: None (occurrence: None)
  Receive Date: 20110620
  Receipt Date: 20110610
  Transmission Date: 20111010
  Serious: Yes (Other)
  Sender: FDA-Public Use
  Company Number: FR-JNJFOC-20101000134

PATIENT
  Sex: Female
  Weight: 85 kg

DRUGS (10)
  1. RISPERDAL [Suspect]
     Route: 048
     Dates: start: 20000101, end: 20101101
  2. PROCTOLOG [Concomitant]
     Indication: HAEMORRHOIDS
     Dates: start: 20101101
  3. FEMIBION [Concomitant]
     Indication: MEDICAL DIET
     Route: 048
     Dates: start: 20101001, end: 20110131
  4. RISPERDAL [Suspect]
     Indication: AFFECTIVE DISORDER
     Route: 048
     Dates: start: 20101101
  5. RISPERDAL [Suspect]
     Route: 048
  6. FERROUS SULFATE TAB [Concomitant]
     Indication: ANAEMIA
     Route: 048
     Dates: start: 20101001, end: 20110228
  7. RISPERDAL [Suspect]
     Indication: MANIA
     Route: 048
     Dates: start: 20101101
  8. RISPERDAL [Suspect]
     Route: 048
  9. RISPERDAL [Suspect]
     Route: 048
     Dates: start: 20000101, end: 20101101
  10. FOLIC ACID [Concomitant]
     Indication: SPINA BIFIDA
     Route: 048
     Dates: start: 20090801, end: 20100801

REACTIONS (6)
  - DRUG EXPOSURE DURING PREGNANCY [None]
  - PROTEINURIA [None]
  - OEDEMA PERIPHERAL [None]
  - PREMATURE LABOUR [None]
  - HYPOTENSION [None]
  - CONDITION AGGRAVATED [None]
